FAERS Safety Report 21246176 (Version 2)
Quarter: 2022Q3

REPORT INFORMATION
  Report Type: Spontaneous
  Country: FR (occurrence: FR)
  Receive Date: 20220824
  Receipt Date: 20220929
  Transmission Date: 20221027
  Serious: Yes (Hospitalization)
  Sender: FDA-Public Use
  Company Number: None

PATIENT
  Age: 58 Year
  Sex: Male
  Weight: 87 kg

DRUGS (4)
  1. DOXORUBICIN [Suspect]
     Active Substance: DOXORUBICIN
     Indication: Follicular lymphoma
     Dosage: UNIT DOSE: 100 MG, FREQUENCY TIME : 28 DAYS, DURATION : 43 DAYS
     Dates: start: 20220411, end: 20220524
  2. VINCRISTINE SULFATE [Suspect]
     Active Substance: VINCRISTINE SULFATE
     Indication: Follicular lymphoma
     Dosage: VINCRISTINE (SULFATE DE), UNIT DOSE: 2 MG, FREQUENCY TIME : 28 DAYS, DURATION : 43 DAYS
     Dates: start: 20220411, end: 20220524
  3. OBINUTUZUMAB [Suspect]
     Active Substance: OBINUTUZUMAB
     Indication: Follicular lymphoma
     Dosage: STRENGTH: 1000 MG, UNIT DOSE: 1000 MG ,FREQUENCY TIME : 28 DAYS, DURATION : 43 DAYS
     Dates: start: 20220411, end: 20220524
  4. CYCLOPHOSPHAMIDE [Suspect]
     Active Substance: CYCLOPHOSPHAMIDE
     Indication: Follicular lymphoma
     Dosage: UNIT DOSE: 1500 MG, FREQUENCY TIME : 28 DAYS, DURATION : 43 DAYS
     Dates: start: 20220411, end: 20220524

REACTIONS (2)
  - Agranulocytosis [Recovering/Resolving]
  - Neutropenia [Recovered/Resolved with Sequelae]

NARRATIVE: CASE EVENT DATE: 20220629
